FAERS Safety Report 16114942 (Version 1)
Quarter: 2019Q1

REPORT INFORMATION
  Report Type: Spontaneous
  Country: JP (occurrence: JP)
  Receive Date: 20190325
  Receipt Date: 20190325
  Transmission Date: 20190418
  Serious: Yes (Death)
  Sender: FDA-Public Use
  Company Number: JP-REGENERON PHARMACEUTICALS, INC.-2019-22435

PATIENT

DRUGS (16)
  1. EYLEA [Suspect]
     Active Substance: AFLIBERCEPT
     Dosage: DAILY DOSE .05 ML LEFT
     Route: 031
     Dates: start: 20180418, end: 20180418
  2. EYLEA [Suspect]
     Active Substance: AFLIBERCEPT
     Dosage: DAILY DOSE .05 ML LEFT
     Route: 031
     Dates: start: 20180702, end: 20180702
  3. EYLEA [Suspect]
     Active Substance: AFLIBERCEPT
     Dosage: DAILY DOSE .05 ML RIGHT
     Route: 031
     Dates: start: 20180723, end: 20180723
  4. EYLEA [Suspect]
     Active Substance: AFLIBERCEPT
     Dosage: DAILY DOSE .05 ML RIGHT
     Route: 031
     Dates: start: 20190204, end: 20190204
  5. EYLEA [Suspect]
     Active Substance: AFLIBERCEPT
     Dosage: DAILY DOSE .05 ML RIGHT
     Route: 031
     Dates: start: 20180523, end: 20180523
  6. INSULIN [Concomitant]
     Active Substance: INSULIN NOS
     Indication: PRODUCT USED FOR UNKNOWN INDICATION
  7. EYLEA [Suspect]
     Active Substance: AFLIBERCEPT
     Dosage: DAILY DOSE .05 ML LEFT
     Route: 031
     Dates: start: 20180530, end: 20180530
  8. EYLEA [Suspect]
     Active Substance: AFLIBERCEPT
     Dosage: DAILY DOSE .05 ML LEFT
     Route: 031
     Dates: start: 20180319, end: 20180319
  9. EYLEA [Suspect]
     Active Substance: AFLIBERCEPT
     Dosage: DAILY DOSE .05 ML LEFT
     Route: 031
     Dates: start: 20190206, end: 20190206
  10. MAGMITT [Concomitant]
     Active Substance: MAGNESIUM OXIDE
     Indication: PRODUCT USED FOR UNKNOWN INDICATION
     Route: 048
  11. EYLEA [Suspect]
     Active Substance: AFLIBERCEPT
     Indication: RETINAL VEIN OCCLUSION
     Dosage: DAILY DOSE .05 ML LEFT
     Route: 031
     Dates: start: 20180122, end: 20180122
  12. EYLEA [Suspect]
     Active Substance: AFLIBERCEPT
     Dosage: DAILY DOSE .05 ML RIGHT
     Route: 031
     Dates: start: 20181107, end: 20181107
  13. EYLEA [Suspect]
     Active Substance: AFLIBERCEPT
     Dosage: DAILY DOSE .05 ML LEFT
     Route: 031
     Dates: start: 20181117, end: 20181117
  14. EYLEA [Suspect]
     Active Substance: AFLIBERCEPT
     Indication: DIABETIC RETINAL OEDEMA
     Dosage: DAILY DOSE .05 ML RIGHT
     Route: 031
     Dates: start: 20180305, end: 20180305
  15. EYLEA [Suspect]
     Active Substance: AFLIBERCEPT
     Dosage: DAILY DOSE .05 ML RIGHT
     Route: 031
     Dates: start: 20180402, end: 20180402
  16. EYLEA [Suspect]
     Active Substance: AFLIBERCEPT
     Dosage: DAILY DOSE .05 ML LEFT
     Route: 031
     Dates: start: 20181217, end: 20181217

REACTIONS (1)
  - Death [Fatal]

NARRATIVE: CASE EVENT DATE: 20190219
